FAERS Safety Report 8069335-8 (Version None)
Quarter: 2012Q1

REPORT INFORMATION
  Report Type: 
  Country: None (occurrence: None)
  Receive Date: 20120125
  Receipt Date: 20120119
  Transmission Date: 20120608
  Serious: Yes (Hospitalization)
  Sender: FDA-Public Use
  Company Number: BE-JNJFOC-20120105874

PATIENT
  Sex: Male
  Weight: 60 kg

DRUGS (8)
  1. XEPLION [Suspect]
     Route: 030
  2. LORMETAZEPAM [Concomitant]
     Indication: INSOMNIA
     Route: 065
  3. XEPLION [Suspect]
     Indication: PRODUCT USED FOR UNKNOWN INDICATION
     Route: 030
  4. SODIUM CHLORIDE [Concomitant]
     Indication: PRODUCT USED FOR UNKNOWN INDICATION
     Route: 065
  5. CLOPIXOL [Concomitant]
     Indication: SCHIZOPHRENIA
     Route: 065
  6. AN UNKNOWN MEDICATION [Concomitant]
     Indication: PROSTATIC DISORDER
     Route: 065
  7. LORAZEPAM [Concomitant]
     Indication: AGITATION
     Route: 065
  8. PANTOPRAZOLE [Concomitant]
     Indication: OESOPHAGITIS
     Route: 065

REACTIONS (1)
  - HYPOGLYCAEMIA [None]
